FAERS Safety Report 7689444-2 (Version None)
Quarter: 2011Q3

REPORT INFORMATION
  Report Type: 
  Country: None (occurrence: None)
  Receive Date: 20110817
  Receipt Date: 20110812
  Transmission Date: 20111222
  Serious: Yes (Hospitalization, Disabling, Other)
  Sender: FDA-Public Use
  Company Number: US-PFIZER INC-2011099035

PATIENT
  Sex: Female

DRUGS (13)
  1. CHANTIX [Suspect]
     Dosage: ONE STARTING PACK AND THREE CONTINUING PACKS
     Route: 048
     Dates: start: 20081218, end: 20090601
  2. ACETAMINOPHEN AND HYDROCODONE BITARTRATE [Concomitant]
     Indication: ANALGESIC THERAPY
     Dosage: UNK
     Dates: start: 20060101, end: 20100101
  3. KLOR-CON [Concomitant]
     Indication: FLUID RETENTION
     Dosage: UNK
     Dates: start: 20080101
  4. CHANTIX [Suspect]
     Indication: SMOKING CESSATION THERAPY
     Dosage: TWO STARTING PACKS AND ONE CONTINUING PACK
     Route: 048
     Dates: start: 20070511, end: 20080901
  5. SUBOXONE [Concomitant]
     Indication: DRUG DEPENDENCE
     Dosage: UNK
     Dates: start: 20080101
  6. NAPROXEN [Concomitant]
     Indication: ANALGESIC THERAPY
     Dosage: UNK
     Dates: start: 20070101, end: 20100101
  7. IBUPROFEN [Concomitant]
     Indication: ANALGESIC THERAPY
     Dosage: UNK
     Dates: start: 20080101
  8. CLINDAMYCIN [Concomitant]
     Indication: BACTERIAL INFECTION
     Dosage: UNK
     Dates: start: 20080101, end: 20100101
  9. CLONAZEPAM [Concomitant]
     Indication: ANXIETY
     Dosage: UNK
     Dates: start: 20070101, end: 20100101
  10. METFORMIN [Concomitant]
     Indication: DIABETES MELLITUS
     Dosage: UNK
     Dates: start: 20080101
  11. PREDNISONE [Concomitant]
     Indication: BRONCHITIS
     Dosage: UNK
     Dates: start: 20080101, end: 20100101
  12. PREDNISONE [Concomitant]
     Indication: PNEUMONIA
  13. POTASSIUM CHLORIDE [Concomitant]
     Indication: HYPOKALAEMIA
     Dosage: UNK
     Dates: start: 20080101, end: 20100101

REACTIONS (6)
  - MAJOR DEPRESSION [None]
  - ANXIETY [None]
  - SUICIDE ATTEMPT [None]
  - HOMICIDAL IDEATION [None]
  - PANIC ATTACK [None]
  - POST-TRAUMATIC STRESS DISORDER [None]
